FAERS Safety Report 23657221 (Version 1)
Quarter: 2024Q1

REPORT INFORMATION
  Report Type: Spontaneous
  Country: CH (occurrence: CH)
  Receive Date: 20240321
  Receipt Date: 20240321
  Transmission Date: 20240410
  Serious: Yes (Hospitalization, Other)
  Sender: FDA-Public Use
  Company Number: None

PATIENT
  Age: 50 Year
  Sex: Female

DRUGS (5)
  1. ZITHROMAX [Suspect]
     Active Substance: AZITHROMYCIN DIHYDRATE
     Indication: Infection
     Dosage: 250 MG, 2X/DAY
     Dates: start: 20230816, end: 20230823
  2. ROCEPHIN [Suspect]
     Active Substance: CEFTRIAXONE SODIUM
     Indication: Infection
     Dosage: 2 G, 1X/DAY
     Dates: start: 20230813, end: 20230820
  3. ACETAMINOPHEN\CODEINE PHOSPHATE [Concomitant]
     Active Substance: ACETAMINOPHEN\CODEINE PHOSPHATE
     Dosage: UNK, 2X/DAY
  4. TOLPERISONE HYDROCHLORIDE [Concomitant]
     Active Substance: TOLPERISONE HYDROCHLORIDE
     Dosage: 150 MG, 1X/DAY
  5. HERBALS\HOPS\VALERIAN [Concomitant]
     Active Substance: HERBALS\HOPS\VALERIAN
     Dosage: 500 MG, 1X/DAY

REACTIONS (3)
  - Encephalopathy [Recovering/Resolving]
  - Condition aggravated [Recovering/Resolving]
  - Off label use [Unknown]

NARRATIVE: CASE EVENT DATE: 20230816
